FAERS Safety Report 7774371-2 (Version None)
Quarter: 2011Q3

REPORT INFORMATION
  Report Type: 
  Country: None (occurrence: None)
  Receive Date: 20110923
  Receipt Date: 20110909
  Transmission Date: 20111222
  Serious: Yes (Other)
  Sender: FDA-Public Use
  Company Number: PHHY2011AR80744

PATIENT
  Sex: Female

DRUGS (1)
  1. DIOVAN [Suspect]
     Indication: HYPERTENSION
     Dosage: 160 MG, 1 TABLET PER DAY

REACTIONS (4)
  - PYREXIA [None]
  - BRONCHOSPASM [None]
  - BLOOD PRESSURE FLUCTUATION [None]
  - BRONCHITIS [None]
